FAERS Safety Report 20299514 (Version 3)
Quarter: 2022Q1

REPORT INFORMATION
  Report Type: Report from Study
  Country: IT (occurrence: IT)
  Receive Date: 20220105
  Receipt Date: 20220321
  Transmission Date: 20220423
  Serious: Yes (Hospitalization)
  Sender: FDA-Public Use
  Company Number: None

PATIENT
  Age: 15 Year
  Sex: Female
  Weight: 80 kg

DRUGS (4)
  1. FINASTERIDE [Suspect]
     Active Substance: FINASTERIDE
     Indication: Product used for unknown indication
     Dosage: 7 DOSAGE FORM, TOTAL
     Route: 048
     Dates: start: 20210812, end: 20210812
  2. AMOXICILLIN\CLAVULANIC ACID [Suspect]
     Active Substance: AMOXICILLIN\CLAVULANIC ACID
     Indication: Product used for unknown indication
     Dosage: 2 DOSAGE FORM, TOTAL
     Route: 048
     Dates: start: 20210812, end: 20210812
  3. ETORICOXIB [Suspect]
     Active Substance: ETORICOXIB
     Indication: Product used for unknown indication
     Dosage: 8 DOSAGE FORM, TOTAL
     Route: 048
     Dates: start: 20210812, end: 20210812
  4. KETOPROFEN\SUCRALFATE [Suspect]
     Active Substance: KETOPROFEN\SUCRALFATE
     Indication: Product used for unknown indication
     Dosage: 10 DOSAGE FORM, TOTAL
     Route: 048
     Dates: start: 20210812, end: 20210812

REACTIONS (3)
  - Abdominal pain upper [Recovered/Resolved]
  - Drug abuse [Recovered/Resolved]
  - Mood altered [Recovered/Resolved]

NARRATIVE: CASE EVENT DATE: 20210812
